FAERS Safety Report 17064838 (Version 2)
Quarter: 2020Q2

REPORT INFORMATION
  Report Type: Report from Study
  Country: US (occurrence: US)
  Receive Date: 20191122
  Receipt Date: 20200514
  Transmission Date: 20200713
  Serious: No
  Sender: FDA-Public Use
  Company Number: NVSC2019US044906

PATIENT
  Sex: Male

DRUGS (2)
  1. ENTRESTO [Suspect]
     Active Substance: SACUBITRIL\VALSARTAN
     Indication: CARDIAC FAILURE CHRONIC
     Dosage: 1 DF (24 MG SACUBITRIL AND 26 MG VALSARTAN)
     Route: 065
     Dates: start: 20191001
  2. ENTRESTO [Suspect]
     Active Substance: SACUBITRIL\VALSARTAN
     Dosage: UNK UNK, UNKNOWN
     Route: 065
     Dates: start: 201911

REACTIONS (2)
  - Ejection fraction decreased [Unknown]
  - Cough [Not Recovered/Not Resolved]
